FAERS Safety Report 4505751-6 (Version None)
Quarter: 2004Q4

REPORT INFORMATION
  Report Type: 
  Country: None (occurrence: None)
  Receive Date: 20041119
  Receipt Date: 20040223
  Transmission Date: 20050328
  Serious: Yes (Hospitalization, Other)
  Sender: FDA-Public Use
  Company Number: JP-GLAXOSMITHKLINE-B0324744A

PATIENT
  Age: 65 Year
  Sex: Female

DRUGS (4)
  1. LITHIUM CARBONATE [Suspect]
     Indication: BIPOLAR I DISORDER
     Dosage: 200MG PER DAY
     Route: 065
  2. LEVOPROMAZINE [Suspect]
     Indication: BIPOLAR I DISORDER
     Dosage: 10MG PER DAY
     Route: 065
  3. PHENOBARBITONE [Suspect]
     Dosage: 200MG PER DAY
     Route: 030
  4. CHLORPROMAZINE [Concomitant]
     Indication: BIPOLAR I DISORDER
     Dosage: 25MG PER DAY
     Route: 065

REACTIONS (18)
  - ALANINE AMINOTRANSFERASE INCREASED [None]
  - AMMONIA ABNORMAL [None]
  - ANOREXIA [None]
  - ASPARTATE AMINOTRANSFERASE INCREASED [None]
  - BLOOD ALKALINE PHOSPHATASE INCREASED [None]
  - BLOOD CREATINE PHOSPHOKINASE INCREASED [None]
  - COMA [None]
  - CONVULSION [None]
  - DIARRHOEA [None]
  - ELECTROCARDIOGRAM T WAVE INVERSION [None]
  - GAIT DISTURBANCE [None]
  - HYPOREFLEXIA [None]
  - HYPOTONIA [None]
  - MEDICATION ERROR [None]
  - MEMORY IMPAIRMENT [None]
  - MYOCLONUS [None]
  - THERAPEUTIC AGENT TOXICITY [None]
  - VISUAL DISTURBANCE [None]
